FAERS Safety Report 23500452 (Version 2)
Quarter: 2024Q1

REPORT INFORMATION
  Report Type: Spontaneous
  Country: US (occurrence: US)
  Receive Date: 20240208
  Receipt Date: 20240308
  Transmission Date: 20240409
  Serious: Yes (Other)
  Sender: FDA-Public Use
  Company Number: US-SA-SAC20240131001540

PATIENT
  Age: 13 Year
  Sex: Male
  Weight: 46.3 kg

DRUGS (9)
  1. ALTUVIIIO [Suspect]
     Active Substance: EFANESOCTOCOG ALFA
     Indication: Factor VIII deficiency
     Dosage: 1457 IU (32 IU/KG), 1X (FIRST DOSE) ON POD 2
     Route: 042
     Dates: start: 20240126, end: 20240126
  2. ALTUVIIIO [Suspect]
     Active Substance: EFANESOCTOCOG ALFA
     Dosage: 2255 IU (50 IU/KG) ON POD 5
     Route: 042
     Dates: start: 20240129, end: 20240129
  3. DEXAMETHASONE [Concomitant]
     Active Substance: DEXAMETHASONE
     Indication: Adenotonsillectomy
     Dosage: 4 MG ON POD 2, 4 AND 6
     Route: 048
     Dates: start: 20240126, end: 20240130
  4. CELEBREX [Concomitant]
     Active Substance: CELECOXIB
     Indication: Adenotonsillectomy
     Dosage: 100 MG, BID
     Route: 048
     Dates: start: 20240124, end: 20240207
  5. HYDROCODONE [Concomitant]
     Active Substance: HYDROCODONE
     Dosage: UNK
     Dates: start: 20240124
  6. TRANEXAMIC ACID [Concomitant]
     Active Substance: TRANEXAMIC ACID
     Indication: Factor VIII deficiency
     Dosage: 1300 MG, TID
     Route: 048
     Dates: start: 20240124, end: 20240214
  7. ELOCTATE [Concomitant]
     Active Substance: EFMOROCTOCOG ALFA
     Indication: Adenotonsillectomy
     Dosage: 50 IU/KG (SURGERY PROPHYLAXIS; PRE-OPERATIVELY) (TOTAL LIFETIME EXPOSURE DAYS PRIOR TO SURGERY WAS 5
     Route: 042
     Dates: start: 202401, end: 202401
  8. ELOCTATE [Concomitant]
     Active Substance: EFMOROCTOCOG ALFA
     Indication: Factor VIII deficiency
     Dosage: CONTINUOUS INFUSION OF ELOCTATE OF 186 IU/HR (4 IU/KG/HR) WHICH CONTINUED FOR APPROXIMATELY 48 HOURS
     Route: 042
     Dates: start: 20240124, end: 20240126
  9. ELOCTATE [Concomitant]
     Active Substance: EFMOROCTOCOG ALFA
     Dosage: 25 IU/KG (1158IU )
     Route: 042
     Dates: start: 20240129, end: 20240205

REACTIONS (7)
  - Infusion related reaction [Recovered/Resolved]
  - Oxygen saturation decreased [Recovered/Resolved]
  - Dyspnoea [Recovered/Resolved]
  - Feeling hot [Recovered/Resolved]
  - Feeling abnormal [Recovered/Resolved]
  - Cough [Recovered/Resolved]
  - Tachycardia [Recovered/Resolved]

NARRATIVE: CASE EVENT DATE: 20240129
